FAERS Safety Report 8800761 (Version 3)
Quarter: 2015Q2

REPORT INFORMATION
  Report Type: Report from Study
  Country: US (occurrence: US)
  Receive Date: 20120921
  Receipt Date: 20150619
  Transmission Date: 20150821
  Serious: Yes (Death)
  Sender: FDA-Public Use
  Company Number: US-ROCHE-1126592

PATIENT
  Sex: Female

DRUGS (12)
  1. HERCEPTIN [Suspect]
     Active Substance: TRASTUZUMAB
     Dosage: 13/JAN/2006, 20/JAN/2006
     Route: 042
  2. HERCEPTIN [Suspect]
     Active Substance: TRASTUZUMAB
     Dosage: 10/MAR/2006
     Route: 042
  3. HERCEPTIN [Suspect]
     Active Substance: TRASTUZUMAB
     Indication: BREAST CANCER FEMALE
     Route: 042
     Dates: start: 20001103
  4. HERCEPTIN [Suspect]
     Active Substance: TRASTUZUMAB
     Dosage: 27/SEP/2001, 04/OCT/2001, 12/OCT/2001, 19/OCT/2001, 26/OCT/2001, 01/NOV/2001, 09/NOV/2001, 15/NOV/20
     Route: 042
  5. HERCEPTIN [Suspect]
     Active Substance: TRASTUZUMAB
     Dosage: 12/DEC/2003
     Route: 042
  6. HERCEPTIN [Suspect]
     Active Substance: TRASTUZUMAB
     Dosage: 23/JUL/2004, 19/AUG/2004, 09/SEP/2004, 30/SEP/2004, 21/OCT/2004, 11/NOV/2004, 27/APR/2005, 19/MAY/20
     Route: 042
  7. HERCEPTIN [Suspect]
     Active Substance: TRASTUZUMAB
     Dosage: 25/FEB/2005, 16/MAR/2005
     Route: 042
  8. AVASTIN [Suspect]
     Active Substance: BEVACIZUMAB
     Indication: BREAST CANCER FEMALE
     Route: 065
     Dates: start: 20060313
  9. HERCEPTIN [Suspect]
     Active Substance: TRASTUZUMAB
     Dosage: 15/MAY/2003, 23/MAY/2003, 29/MAY/2003, 06/JUN/2003, 18/JUN/2003, 27/JUN/2003, 03/JUL/2003, 11/JUL/20
     Route: 042
  10. HERCEPTIN [Suspect]
     Active Substance: TRASTUZUMAB
     Dosage: 17/NOV/2000, 01/DEC/2000, 15/DEC/2000, 22/DEC/2000, 29/DEC/2000, 05/JAN/2001, 18/JAN/2001, 25/JAN/20
     Route: 042
     Dates: start: 20001110
  11. HERCEPTIN [Suspect]
     Active Substance: TRASTUZUMAB
     Dosage: 21/MAR/2002, 11/APR/2002, 02/MAY/2002, 23/MAY/2002, 13/JUN/2002, 10/JUL/2002, 30/JUL/2002, 22/AUG/20
     Route: 042
  12. HERCEPTIN [Suspect]
     Active Substance: TRASTUZUMAB
     Dosage: 16/JUN/2004
     Route: 042

REACTIONS (2)
  - Death [Fatal]
  - Off label use [Unknown]
